FAERS Safety Report 4588925-8 (Version None)
Quarter: 2005Q1

REPORT INFORMATION
  Report Type: 
  Country: None (occurrence: None)
  Receive Date: 20050216
  Receipt Date: 20050128
  Transmission Date: 20050727
  Serious: Yes (Hospitalization)
  Sender: FDA-Public Use
  Company Number: US_0502111996

PATIENT
  Sex: Female

DRUGS (3)
  1. CYMBALTA [Suspect]
     Dosage: 60 MG DAY
     Dates: start: 20041201, end: 20050101
  2. LAMICTAL [Concomitant]
  3. EFFEXOR [Concomitant]

REACTIONS (1)
  - PETIT MAL EPILEPSY [None]
